FAERS Safety Report 6133711-0 (Version None)
Quarter: 2009Q1

REPORT INFORMATION
  Report Type: 
  Country: None (occurrence: None)
  Receive Date: 20090326
  Receipt Date: 20090320
  Transmission Date: 20090719
  Serious: Yes (Other)
  Sender: FDA-Public Use
  Company Number: B0566459A

PATIENT
  Age: 46 Year
  Sex: Male

DRUGS (6)
  1. TELZIR [Suspect]
     Indication: HIV INFECTION
     Route: 048
     Dates: start: 20040908, end: 20041216
  2. COMBIVIR [Suspect]
     Indication: HIV INFECTION
     Route: 048
  3. EPIVIR [Suspect]
     Indication: HIV INFECTION
     Route: 048
     Dates: start: 20050524
  4. NORVIR [Suspect]
     Indication: HIV INFECTION
     Route: 048
     Dates: end: 20041216
  5. VIRACEPT [Suspect]
     Indication: HIV INFECTION
     Route: 048
     Dates: start: 20050214
  6. VIREAD [Suspect]
     Indication: HIV INFECTION
     Route: 048
     Dates: start: 20050524

REACTIONS (2)
  - HAEMATOTOXICITY [None]
  - HEPATOTOXICITY [None]
